FAERS Safety Report 15516182 (Version 1)
Quarter: 2018Q4

REPORT INFORMATION
  Report Type: Spontaneous
  Country: US (occurrence: US)
  Receive Date: 20181017
  Receipt Date: 20181017
  Transmission Date: 20190205
  Serious: Yes (Other)
  Sender: FDA-Public Use
  Company Number: US-PFIZER INC-2018419101

PATIENT
  Age: 70 Year
  Sex: Female

DRUGS (2)
  1. LYRICA [Suspect]
     Active Substance: PREGABALIN
     Indication: NEUROPATHY PERIPHERAL
     Dosage: 75 MG, 1X/DAY, (AT NIGHT)
  2. LYRICA [Suspect]
     Active Substance: PREGABALIN
     Indication: PAIN
     Dosage: 50 MG, 2X/DAY (1 IN THE MORNING, 1 AFTERNOON)

REACTIONS (10)
  - Drug dependence [Unknown]
  - Prescription drug used without a prescription [Unknown]
  - Crying [Unknown]
  - Feeling of despair [Unknown]
  - Feeling drunk [Unknown]
  - Burning sensation [Unknown]
  - Sleep disorder due to a general medical condition [Not Recovered/Not Resolved]
  - Sedation [Unknown]
  - Dyskinesia [Unknown]
  - Drug ineffective [Unknown]
